FAERS Safety Report 9684503 (Version 2)
Quarter: 2013Q4

REPORT INFORMATION
  Report Type: Spontaneous
  Country: US (occurrence: US)
  Receive Date: 20131112
  Receipt Date: 20131219
  Transmission Date: 20140711
  Serious: Yes (Hospitalization, Other)
  Sender: FDA-Public Use
  Company Number: US-CELGENEUS-163-21880-13110482

PATIENT
  Age: 64 Year
  Sex: Female

DRUGS (5)
  1. REVLIMID [Suspect]
     Indication: MYELODYSPLASTIC SYNDROME
     Dosage: 10 MILLIGRAM
     Route: 048
     Dates: start: 20131011, end: 20131028
  2. EXJADE [Concomitant]
     Indication: SERUM FERRITIN INCREASED
     Dosage: 2 GRAM
     Route: 048
     Dates: start: 20130917
  3. LOSARTAN [Concomitant]
     Indication: HYPERTENSION
     Dosage: 25 MILLIGRAM
     Route: 048
  4. SERTRALINE [Concomitant]
     Indication: DEPRESSION
     Dosage: 100 MILLIGRAM
     Route: 048
  5. ZOFRAN [Concomitant]
     Indication: NAUSEA
     Route: 065
     Dates: start: 20130917

REACTIONS (2)
  - B-cell small lymphocytic lymphoma [Unknown]
  - Tumour flare [Recovered/Resolved]
